FAERS Safety Report 21256846 (Version 1)
Quarter: 2022Q3

REPORT INFORMATION
  Report Type: Spontaneous
  Country: US (occurrence: US)
  Receive Date: 20220826
  Receipt Date: 20220826
  Transmission Date: 20221027
  Serious: No
  Sender: FDA-Public Use
  Company Number: US-GSKCCFUS-Case-01475291_AE-84325

PATIENT
  Sex: Female

DRUGS (1)
  1. FLOVENT HFA [Suspect]
     Active Substance: FLUTICASONE PROPIONATE
     Indication: Product used for unknown indication
     Dosage: UNK

REACTIONS (5)
  - Chest discomfort [Unknown]
  - Device use error [Unknown]
  - Product dose omission issue [Unknown]
  - Wrong technique in product usage process [Unknown]
  - Extra dose administered [Unknown]
